FAERS Safety Report 19915655 (Version 2)
Quarter: 2021Q4

REPORT INFORMATION
  Report Type: Report from Study
  Country: US (occurrence: US)
  Receive Date: 20211005
  Receipt Date: 20211107
  Transmission Date: 20220303
  Serious: Yes (Hospitalization, Other)
  Sender: FDA-Public Use
  Company Number: US-ABBVIE-21K-163-4097776-00

PATIENT
  Sex: Female
  Weight: 51.983 kg

DRUGS (4)
  1. HUMIRA [Suspect]
     Active Substance: ADALIMUMAB
     Indication: Crohn^s disease
     Dosage: CITRATE FREE
     Route: 058
     Dates: start: 2016, end: 20210609
  2. SYNTHROID [Concomitant]
     Active Substance: LEVOTHYROXINE SODIUM
     Indication: Thyroid disorder
  3. PFIZER-BIONTECH COVID-19 VACCINE [Concomitant]
     Active Substance: TOZINAMERAN
     Indication: COVID-19 immunisation
     Dosage: 1ST DOSE
     Route: 030
     Dates: start: 20210208, end: 20210208
  4. PFIZER-BIONTECH COVID-19 VACCINE [Concomitant]
     Active Substance: TOZINAMERAN
     Dosage: 2ND DOSE
     Route: 030
     Dates: start: 20210301, end: 20210301

REACTIONS (11)
  - Intestinal haemorrhage [Recovered/Resolved]
  - Immunodeficiency [Not Recovered/Not Resolved]
  - Dysphagia [Recovered/Resolved]
  - Pharyngeal abscess [Recovering/Resolving]
  - Crohn^s disease [Recovered/Resolved]
  - Bacterial infection [Recovered/Resolved]
  - Asthenia [Unknown]
  - Asthenia [Unknown]
  - Fear [Recovered/Resolved]
  - Oropharyngeal pain [Not Recovered/Not Resolved]
  - Crohn^s disease [Unknown]

NARRATIVE: CASE EVENT DATE: 20210101
